FAERS Safety Report 10236142 (Version 1)
Quarter: 2014Q2

REPORT INFORMATION
  Report Type: Spontaneous
  Country: US (occurrence: US)
  Receive Date: 20140613
  Receipt Date: 20140613
  Transmission Date: 20141212
  Serious: Yes (Life-Threatening, Hospitalization)
  Sender: FDA-Public Use
  Company Number: US-ACTAVIS-2014-13151

PATIENT
  Sex: Female

DRUGS (2)
  1. DEXAMETHASONE (WATSON LABORATORIES) [Suspect]
     Indication: CENTRAL NERVOUS SYSTEM LYMPHOMA
     Dosage: 4 MG THREE TIMES DAILY; TAPERED TO 2 MG 3 TIMES DAILY
     Route: 064
  2. RITUXIMAB [Suspect]
     Indication: CENTRAL NERVOUS SYSTEM LYMPHOMA
     Dosage: 375 MG/M2, 1/WEEK
     Route: 064

REACTIONS (2)
  - Apnoea neonatal [Recovered/Resolved]
  - Foetal exposure during pregnancy [Recovered/Resolved]
